FAERS Safety Report 13562896 (Version 1)
Quarter: 2017Q2

REPORT INFORMATION
  Report Type: Spontaneous
  Country: US (occurrence: US)
  Receive Date: 20170519
  Receipt Date: 20170519
  Transmission Date: 20170830
  Serious: No
  Sender: FDA-Public Use
  Company Number: US-JNJFOC-20170405411

PATIENT
  Age: 72 Year
  Sex: Female
  Weight: 86.18 kg

DRUGS (4)
  1. ZYRTEC-D [Suspect]
     Active Substance: CETIRIZINE HYDROCHLORIDE\PSEUDOEPHEDRINE HYDROCHLORIDE
     Indication: SINUS DISORDER
     Dosage: USED AT NIGHT THEN IN THE DAYTIME.
     Route: 048
     Dates: start: 20170403
  2. GABAPENTIN. [Concomitant]
     Active Substance: GABAPENTIN
     Indication: PAIN
     Dosage: USED FOR 8MONTHS
     Route: 065
  3. PRAVASTATIN. [Concomitant]
     Active Substance: PRAVASTATIN
     Indication: BLOOD CHOLESTEROL
     Dosage: USED FOR 4 YEARS
     Route: 065
  4. ZYRTEC-D [Suspect]
     Active Substance: CETIRIZINE HYDROCHLORIDE\PSEUDOEPHEDRINE HYDROCHLORIDE
     Route: 048

REACTIONS (4)
  - Therapeutic response unexpected [Unknown]
  - Drug administration error [Recovered/Resolved]
  - Product use in unapproved indication [Recovered/Resolved]
  - Insomnia [Recovered/Resolved]

NARRATIVE: CASE EVENT DATE: 20170403
